FAERS Safety Report 7494935-3 (Version None)
Quarter: 2011Q2

REPORT INFORMATION
  Report Type: 
  Country: None (occurrence: None)
  Receive Date: 20110520
  Receipt Date: 20110510
  Transmission Date: 20111010
  Serious: Yes (Hospitalization)
  Sender: FDA-Public Use
  Company Number: DE-UCBSA-026105

PATIENT
  Sex: Female
  Weight: 80 kg

DRUGS (15)
  1. SIMVASTATIN [Concomitant]
     Dosage: 20; 0-0-1-0
  2. HYDROCHLOROTHIAZIDE [Concomitant]
     Dosage: SINGLE DOSE 12,5 TOTAL DAILY DOSE 12,5
     Route: 048
  3. LEVODOPA [Concomitant]
     Dosage: DOSE TAPERING
  4. LEVODOPA RET [Concomitant]
     Dosage: 100/25 0-0-0-1
  5. NEUPRO [Suspect]
     Indication: RESTLESS LEGS SYNDROME
     Route: 062
     Dates: start: 20080603, end: 20110214
  6. BIOTIN [Concomitant]
     Route: 048
  7. MICARDIS [Concomitant]
     Dosage: 40 ONCE EVERY ONE DAY
     Route: 048
  8. RESTEX [Concomitant]
     Dosage: 0-0-0-1 (ONE FOR NIGHT)
  9. LEVODOPA [Concomitant]
     Dosage: 1 TABLET A DAY
  10. ASPIRIN [Concomitant]
     Dosage: 100 ONCE EVERY ONE DAY
     Route: 048
  11. ALLOPURINOL [Concomitant]
     Dosage: 300; 0-0-1-0
  12. VOLTAREN [Concomitant]
     Indication: MUSCULOSKELETAL DISCOMFORT
     Dosage: 1-0-1-0
  13. CORDANUM [Concomitant]
     Dosage: 50 ONCE EVERY ONE DAY
     Route: 048
  14. MAGNESIUM VERLA DRG [Concomitant]
     Dosage: 0-0-0-2
  15. TIMOPHTAL [Concomitant]
     Dosage: 0.25AT BDS; 1-0-1-0

REACTIONS (6)
  - APPLICATION SITE VESICLES [None]
  - RESTLESS LEGS SYNDROME [None]
  - HYPERSENSITIVITY [None]
  - ERYTHEMA [None]
  - APPLICATION SITE PRURITUS [None]
  - APPLICATION SITE INFECTION [None]
